FAERS Safety Report 10375182 (Version 1)
Quarter: 2014Q1

REPORT INFORMATION
  Report Type: Spontaneous
  Country: US (occurrence: None)
  Receive Date: 20140306
  Receipt Date: 20140306
  Transmission Date: 20141002
  Serious: Yes (Death)
  Sender: FDA-Public Use
  Company Number: 163-21880-12120150

PATIENT
  Age: 89 Year
  Sex: Male
  Weight: 65.32 kg

DRUGS (16)
  1. REVLIMID [Suspect]
     Indication: PLASMA CELL MYELOMA
     Route: 048
     Dates: start: 20120612
  2. PROCRIT (ERYTHROPOIETIN) [Concomitant]
  3. VITAMIN B12 (CYANOCOBALAMIN) [Concomitant]
  4. AREDIA (PAMIDRONATE DISODIUM) [Concomitant]
  5. ASPIRIN (ACETYLSALICYLIC ACID) (TABLETS) [Concomitant]
  6. VELCADE (BORTEZOMIB) [Concomitant]
  7. ZOMETA (ZOLEDRONIC ACID) [Concomitant]
  8. COLACE (DOCUSATE SODIUM) [Concomitant]
  9. CYANOCOBALAMIN (CYANOCOBALAMIN) (INJECTION) [Concomitant]
  10. DULCOLAX (BISACODYL) (TABLETS) [Concomitant]
  11. FOLIC ACID (FOLIC ACID) (TABLETS) [Concomitant]
  12. LEVOTHYROXINEI (LEVOTHYROXINE) (TABLETS) [Concomitant]
  13. MIRALAX (MACROGOL) (POWDER) [Concomitant]
  14. POTASSIUM CHLORIDE (POTASSIUM CHLORIDE) [Concomitant]
  15. PROMETHAZINE (PROMETHAZINE) (TABLETS) [Concomitant]
  16. ZOVIRAX (ACICLOVIR (TABLETS) [Concomitant]

REACTIONS (2)
  - Cardiac failure congestive [None]
  - Rash [None]
